FAERS Safety Report 13824647 (Version 1)
Quarter: 2017Q3

REPORT INFORMATION
  Report Type: Other
  Country: US (occurrence: US)
  Receive Date: 20170802
  Receipt Date: 20170802
  Transmission Date: 20171127
  Serious: Yes (Other)
  Sender: FDA-Public Use
  Company Number: US-ACTELION-A-CH2017-157232

PATIENT
  Age: 66 Year
  Sex: Female

DRUGS (1)
  1. EPOPROSTENOL SODIUM. [Suspect]
     Active Substance: EPOPROSTENOL SODIUM
     Indication: PULMONARY ARTERIAL HYPERTENSION
     Route: 042

REACTIONS (9)
  - Weight decreased [Unknown]
  - Tri-iodothyronine increased [Unknown]
  - Dyspepsia [Unknown]
  - Tremor [Unknown]
  - Thyroxine free increased [Unknown]
  - Basedow^s disease [Unknown]
  - Blood thyroid stimulating hormone decreased [Unknown]
  - Dyspnoea [Unknown]
  - Thyroid stimulating immunoglobulin increased [Unknown]
